FAERS Safety Report 25261535 (Version 4)
Quarter: 2025Q4

REPORT INFORMATION
  Report Type: Report from Study
  Country: EU (occurrence: EU)
  Receive Date: 20250501
  Receipt Date: 20251110
  Transmission Date: 20260118
  Serious: Yes (Hospitalization)
  Sender: ABBVIE
  Company Number: EU-ABBVIE-6262169

PATIENT
  Sex: Female

DRUGS (1)
  1. FOSCARBIDOPA\FOSLEVODOPA [Suspect]
     Active Substance: FOSCARBIDOPA\FOSLEVODOPA
     Indication: Parkinson^s disease
     Dosage: CRN: 0.26 ML/H; CR 0.46 ML/H; CRH 0.50 ML/H; ED 0.30 ML
     Route: 058
     Dates: start: 20240305

REACTIONS (52)
  - Tinnitus [Recovering/Resolving]
  - Nausea [Unknown]
  - Tremor [Recovering/Resolving]
  - Infusion site erythema [Unknown]
  - Infusion site pruritus [Unknown]
  - Infusion site pain [Unknown]
  - Infusion site haemorrhage [Unknown]
  - Spinal pain [Unknown]
  - Chest pain [Unknown]
  - Sensory loss [Unknown]
  - Paraesthesia [Unknown]
  - Dry mouth [Unknown]
  - Diarrhoea [Unknown]
  - Incontinence [Unknown]
  - Vitamin B12 deficiency [Unknown]
  - Weight decreased [Unknown]
  - Flatulence [Unknown]
  - Dyspepsia [Unknown]
  - Dysphagia [Unknown]
  - Dysgeusia [Unknown]
  - Dysphonia [Not Recovered/Not Resolved]
  - Gait disturbance [Not Recovered/Not Resolved]
  - Movement disorder [Not Recovered/Not Resolved]
  - Muscle spasms [Unknown]
  - Muscular weakness [Unknown]
  - Hypoaesthesia [Unknown]
  - Dry mouth [Unknown]
  - Weight decreased [Unknown]
  - Malaise [Unknown]
  - Nausea [Unknown]
  - Fatigue [Unknown]
  - Asthenia [Unknown]
  - Pruritus [Unknown]
  - Alopecia [Unknown]
  - Peripheral coldness [Unknown]
  - Dyspnoea [Unknown]
  - Paraesthesia [Unknown]
  - Hyperhidrosis [Unknown]
  - Freezing phenomenon [Unknown]
  - Hypoaesthesia [Unknown]
  - Somnolence [Unknown]
  - Nightmare [Unknown]
  - Chest pain [Unknown]
  - Muscle spasms [Unknown]
  - Dry eye [Unknown]
  - Dry mouth [Unknown]
  - Alopecia [Unknown]
  - Taste disorder [Unknown]
  - Tinnitus [Unknown]
  - Cerebrovascular accident [Not Recovered/Not Resolved]
  - Arthralgia [Unknown]
  - Dysphagia [Unknown]
